FAERS Safety Report 4907349-4 (Version None)
Quarter: 2006Q1

REPORT INFORMATION
  Report Type: 
  Country: None (occurrence: None)
  Receive Date: 20060208
  Receipt Date: 20060206
  Transmission Date: 20060701
  Serious: Yes (Disabling)
  Sender: FDA-Public Use
  Company Number: THQ2006A00121

PATIENT
  Age: 56 Year
  Sex: Male

DRUGS (4)
  1. LANSOPRAZOLE [Suspect]
     Indication: GASTROOESOPHAGEAL REFLUX DISEASE
     Dosage: 30 MG (30 MG, 1 IN 1 D), PER ORAL
     Route: 048
     Dates: start: 20050401
  2. LANSOPRAZOLE [Suspect]
     Indication: MYOCARDIAL ISCHAEMIA
     Dosage: 30 MG (30 MG, 1 IN 1 D), PER ORAL
     Route: 048
     Dates: start: 20050401
  3. TELMISARTAN [Suspect]
     Indication: HYPERTENSION
     Dosage: 20 MG (20 MG, 1 IN 1 D), PER ORAL
     Route: 048
     Dates: start: 20050301
  4. ATENOLOL [Concomitant]

REACTIONS (1)
  - TENDONITIS [None]
